FAERS Safety Report 9490982 (Version 1)
Quarter: 2013Q3

REPORT INFORMATION
  Report Type: Spontaneous
  Country: US (occurrence: US)
  Receive Date: 20130830
  Receipt Date: 20130830
  Transmission Date: 20140515
  Serious: Yes (Hospitalization)
  Sender: FDA-Public Use
  Company Number: US-PFIZER INC-2013250067

PATIENT
  Age: 42 Year
  Sex: Female
  Weight: 77.1 kg

DRUGS (2)
  1. EFFEXOR XR [Suspect]
     Indication: ANXIETY
     Dosage: 150 MG DAILY
     Dates: end: 201302
  2. EFFEXOR XR [Suspect]
     Indication: DEPRESSION

REACTIONS (1)
  - Anxiety [Unknown]
